FAERS Safety Report 15399797 (Version 3)
Quarter: 2020Q4

REPORT INFORMATION
  Report Type: Report from Study
  Country: None (occurrence: CA)
  Receive Date: 20180918
  Receipt Date: 20201011
  Transmission Date: 20210113
  Serious: Yes (Other)
  Sender: FDA-Public Use
  Company Number: CA-ABBVIE-18K-028-2485417-00

PATIENT
  Sex: Male

DRUGS (3)
  1. HUMIRA [Suspect]
     Active Substance: ADALIMUMAB
     Indication: CROHN^S DISEASE
     Route: 058
     Dates: start: 20110930, end: 2015
  2. HUMIRA [Suspect]
     Active Substance: ADALIMUMAB
     Route: 058
     Dates: end: 2017
  3. HUMIRA [Suspect]
     Active Substance: ADALIMUMAB
     Route: 058
     Dates: start: 2018

REACTIONS (29)
  - Cold sweat [Unknown]
  - Anxiety [Not Recovered/Not Resolved]
  - Abdominal pain lower [Recovered/Resolved]
  - Crohn^s disease [Not Recovered/Not Resolved]
  - Pyrexia [Unknown]
  - Pharyngitis [Not Recovered/Not Resolved]
  - Bundle branch block right [Unknown]
  - Insomnia [Not Recovered/Not Resolved]
  - Abdominal discomfort [Unknown]
  - Nausea [Not Recovered/Not Resolved]
  - Intestinal obstruction [Unknown]
  - Benign neoplasm [Unknown]
  - Quality of life decreased [Not Recovered/Not Resolved]
  - Skin ulcer [Unknown]
  - Lethargy [Unknown]
  - Ear infection [Not Recovered/Not Resolved]
  - Abdominal pain [Unknown]
  - Ear discomfort [Recovered/Resolved]
  - Osteoarthritis [Unknown]
  - Frequent bowel movements [Recovering/Resolving]
  - Depression [Not Recovered/Not Resolved]
  - Therapeutic response shortened [Not Recovered/Not Resolved]
  - Asthenia [Unknown]
  - Skin lesion [Unknown]
  - Decreased appetite [Unknown]
  - Malaise [Not Recovered/Not Resolved]
  - Tremor [Unknown]
  - Diarrhoea [Unknown]
  - Throat irritation [Recovered/Resolved]

NARRATIVE: CASE EVENT DATE: 2013
